FAERS Safety Report 6243796-9 (Version None)
Quarter: 2009Q2

REPORT INFORMATION
  Report Type: 
  Country: None (occurrence: None)
  Receive Date: 20090624
  Receipt Date: 20090612
  Transmission Date: 20091009
  Serious: Yes (Hospitalization)
  Sender: FDA-Public Use
  Company Number: PHHY2009GB23684

PATIENT

DRUGS (1)
  1. CLOZARIL [Suspect]
     Dosage: 350 MG, UNK
     Route: 048
     Dates: start: 20090612

REACTIONS (1)
  - WRONG DRUG ADMINISTERED [None]
